FAERS Safety Report 6887719-8 (Version None)
Quarter: 2010Q3

REPORT INFORMATION
  Report Type: 
  Country: None (occurrence: None)
  Receive Date: 20100730
  Receipt Date: 20100726
  Transmission Date: 20110219
  Serious: Yes (Life-Threatening, Hospitalization, Other)
  Sender: FDA-Public Use
  Company Number: GB-SANOFI-AVENTIS-2010SA043232

PATIENT
  Age: 63 Year
  Sex: Female

DRUGS (4)
  1. OXALIPLATIN [Suspect]
     Indication: COLORECTAL CANCER
     Route: 042
     Dates: start: 20100211, end: 20100211
  2. OXALIPLATIN [Suspect]
     Route: 042
     Dates: start: 20100624, end: 20100624
  3. CAPECITABINE [Suspect]
     Indication: COLORECTAL CANCER
     Dosage: D1-14 Q21D
     Route: 048
     Dates: start: 20100211
  4. CAPECITABINE [Suspect]
     Route: 048
     Dates: end: 20100701

REACTIONS (7)
  - ACUTE CORONARY SYNDROME [None]
  - ASCITES [None]
  - DEHYDRATION [None]
  - DIARRHOEA [None]
  - HEPATIC FAILURE [None]
  - RENAL IMPAIRMENT [None]
  - RESPIRATORY FAILURE [None]
